FAERS Safety Report 5562674-1 (Version None)
Quarter: 2007Q4

REPORT INFORMATION
  Report Type: 
  Country: None (occurrence: None)
  Receive Date: 20071211
  Receipt Date: 20071211
  Transmission Date: 20080405
  Serious: Yes (Other)
  Sender: FDA-Public Use
  Company Number: None

PATIENT
  Age: 49 Year
  Sex: Male
  Weight: 92.5338 kg

DRUGS (2)
  1. TOPROL-XL [Suspect]
     Dosage: 12.5 MG DAILY PO
     Route: 048
     Dates: start: 20070515, end: 20071019
  2. ORACEA [Concomitant]

REACTIONS (3)
  - DEAFNESS [None]
  - NO THERAPEUTIC RESPONSE [None]
  - TINNITUS [None]
